FAERS Safety Report 10078733 (Version 1)
Quarter: 2014Q2

REPORT INFORMATION
  Report Type: Spontaneous
  Country: FR (occurrence: None)
  Receive Date: 20140411
  Receipt Date: 20140411
  Transmission Date: 20141212
  Serious: Yes (Hospitalization)
  Sender: FDA-Public Use
  Company Number: 2014FR003143

PATIENT
  Age: 62 Year
  Sex: Female

DRUGS (14)
  1. ICLUSIG [Suspect]
     Indication: ACUTE LYMPHOCYTIC LEUKAEMIA
     Route: 048
     Dates: start: 20131218, end: 201401
  2. ICLUSIG [Suspect]
     Indication: CHROMOSOME ANALYSIS ABNORMAL
     Route: 048
     Dates: start: 20131218, end: 201401
  3. ZELITREX (VALACICLOVIR HYDROCHLORIDE) (VALACICLOVIR HYDROCHLORIDE) [Concomitant]
  4. BACTRIM (SULFAMETHOXAZOLE TRIMETHOPRIM) [Concomitant]
  5. LEDERFOLINE (CALCIUM FOLINATE) [Concomitant]
  6. INEXIUM (ESOMEPRAZOLE MAGNESIUM) (ESOMEPRAZOLE MAGNESIUM) [Concomitant]
  7. KARDEGIC (ACETYLSALICYLATE IYSINE) [Concomitant]
  8. BISOPROLOL (BISOPROLOL FUMARATE, HYDROCHLOROTHIAZIDE) [Concomitant]
  9. COVERAM (AMLODIPINE BESILATE, PERINDOPRIL ARGININE) [Concomitant]
  10. TOPALGIC (TRAMADOL HYDROCHLORIDE) [Concomitant]
  11. IMOVANE (ZOPICLONE) [Concomitant]
  12. LEMEVIR (INSULIN DETEMIR) [Concomitant]
  13. HUMALOG (INSULIN LISPRO) [Concomitant]
  14. SYMBICORT (BUDESONIDE, FORMOTEROL FUMARATE) [Concomitant]

REACTIONS (6)
  - Toxic skin eruption [None]
  - Dermatitis exfoliative [None]
  - Overdose [None]
  - Ectropion [None]
  - Hyperkeratosis [None]
  - Eczema [None]
